FAERS Safety Report 11685500 (Version 11)
Quarter: 2018Q1

REPORT INFORMATION
  Report Type: Spontaneous
  Country: US (occurrence: US)
  Receive Date: 20151030
  Receipt Date: 20180328
  Transmission Date: 20180508
  Serious: Yes (Congenital Anomaly, Other)
  Sender: FDA-Public Use
  Company Number: PHEH2015US021797

PATIENT
  Sex: Female

DRUGS (3)
  1. ONDANSETRON [Suspect]
     Active Substance: ONDANSETRON
     Indication: FOETAL EXPOSURE DURING PREGNANCY
     Route: 064
  2. ZOFRAN [Suspect]
     Active Substance: ONDANSETRON HYDROCHLORIDE
     Indication: FOETAL EXPOSURE DURING PREGNANCY
     Dosage: MOTHER^S DRUG FREQUENCY: PRN
     Route: 064
  3. ONDANSETRON TEVA [Suspect]
     Active Substance: ONDANSETRON
     Indication: FOETAL EXPOSURE DURING PREGNANCY
     Dosage: MOTHER^S DOSE: 8 MG, UNK
     Route: 064

REACTIONS (31)
  - Congenital anomaly [Unknown]
  - Respiratory syncytial virus infection [Unknown]
  - Candida infection [Unknown]
  - Dermatitis atopic [Unknown]
  - Transposition of the great vessels [Unknown]
  - Patent ductus arteriosus [Unknown]
  - Pain [Unknown]
  - Cardiac murmur [Unknown]
  - Gastroenteritis [Unknown]
  - Asthma [Unknown]
  - Pyrexia [Unknown]
  - Atrial septal defect [Unknown]
  - Eczema [Unknown]
  - Rhinitis allergic [Unknown]
  - Multiple congenital abnormalities [Unknown]
  - Foetal exposure during pregnancy [Unknown]
  - Pulmonary valve stenosis [Unknown]
  - Injury [Unknown]
  - Pulmonary artery stenosis congenital [Unknown]
  - Emotional distress [Unknown]
  - Otitis media [Unknown]
  - Bronchitis [Unknown]
  - Failure to thrive [Unknown]
  - Anhedonia [Unknown]
  - Pruritus [Unknown]
  - Heart disease congenital [Unknown]
  - Cyanosis neonatal [Unknown]
  - Anxiety [Unknown]
  - Tonsillitis [Unknown]
  - Pharyngitis [Unknown]
  - Dermatitis contact [Unknown]
